FAERS Safety Report 17704937 (Version 2)
Quarter: 2020Q3

REPORT INFORMATION
  Report Type: Spontaneous
  Country: BE (occurrence: BE)
  Receive Date: 20200424
  Receipt Date: 20200701
  Transmission Date: 20201102
  Serious: Yes (Other)
  Sender: FDA-Public Use
  Company Number: NVSC2020BE110158

PATIENT
  Sex: Male
  Weight: 80.2 kg

DRUGS (6)
  1. CYCLOPHOSPHAMIDE. [Suspect]
     Active Substance: CYCLOPHOSPHAMIDE
     Indication: PRODUCT USED FOR UNKNOWN INDICATION
     Dosage: 1026 MG, QD
     Route: 042
     Dates: start: 20200108, end: 20200110
  2. FOLAVIT [Concomitant]
     Active Substance: FOLIC ACID
     Indication: PROPHYLAXIS
     Dosage: 4 MG, QD
     Route: 065
     Dates: start: 20200108
  3. ZYLORIC [Concomitant]
     Active Substance: ALLOPURINOL
     Indication: PROPHYLAXIS
     Dosage: 300 MG, QD
     Route: 065
     Dates: start: 20200108
  4. LITICAN [Concomitant]
     Active Substance: ALIZAPRIDE HYDROCHLORIDE
     Indication: PROPHYLAXIS
     Dosage: 50 MG, PRN
     Route: 065
     Dates: start: 20200108
  5. ZOFRAN [Concomitant]
     Active Substance: ONDANSETRON HYDROCHLORIDE
     Indication: PROPHYLAXIS
     Dosage: 8 MG, UNK
     Route: 065
     Dates: start: 20200108, end: 20200109
  6. FLUDARABINE PHOSPHATE. [Suspect]
     Active Substance: FLUDARABINE PHOSPHATE
     Indication: PRODUCT USED FOR UNKNOWN INDICATION
     Dosage: 61.5 MG, QD
     Route: 042
     Dates: start: 20200108, end: 20200110

REACTIONS (5)
  - Sinusitis [Recovered/Resolved]
  - Neutropenia [Recovered/Resolved]
  - Neurotoxicity [Not Recovered/Not Resolved]
  - Cytokine release syndrome [Recovered/Resolved]
  - Cytokine release syndrome [Not Recovered/Not Resolved]

NARRATIVE: CASE EVENT DATE: 20200116
